FAERS Safety Report 9518569 (Version 3)
Quarter: 2013Q4

REPORT INFORMATION
  Report Type: Report from Study
  Country: JP (occurrence: JP)
  Receive Date: 20130912
  Receipt Date: 20131104
  Transmission Date: 20140711
  Serious: Yes (Death, Life-Threatening, Disabling, Other)
  Sender: FDA-Public Use
  Company Number: PHHY2013JP050542

PATIENT
  Age: 81 Year
  Sex: Male
  Weight: 76 kg

DRUGS (10)
  1. EXJADE [Suspect]
     Indication: MYELODYSPLASTIC SYNDROME
     Dosage: 500 MG, DAILY
     Route: 048
     Dates: start: 20081014, end: 20090129
  2. EXJADE [Suspect]
     Dosage: 1000 MG, DAILY
     Route: 048
     Dates: start: 20090130, end: 20110406
  3. EXJADE [Suspect]
     Dosage: 500 MG, DAILY
     Route: 048
     Dates: start: 20110408, end: 20110415
  4. PRIMOBOLAN [Concomitant]
     Indication: MYELODYSPLASTIC SYNDROME
     Dosage: 10 MG
     Route: 048
     Dates: start: 20081014
  5. PRIMOBOLAN [Concomitant]
     Dosage: 05 MG
     Route: 048
     Dates: end: 20110420
  6. ZOVIRAX [Concomitant]
     Indication: PROPHYLAXIS
     Dosage: 200 MG
     Dates: start: 20081014, end: 20110217
  7. ITRIZOLE [Concomitant]
     Indication: PROPHYLAXIS
     Dosage: 0.5 ML
     Route: 048
     Dates: start: 20081014
  8. GLUCOBAY [Concomitant]
     Dosage: 150 MG, UNK
     Route: 048
     Dates: start: 20090319, end: 20110420
  9. RED CELLS MAP [Concomitant]
     Dosage: 2 U, EVERY 10 DAYS
     Dates: start: 20081014
  10. RED CELLS MAP [Concomitant]
     Dosage: 2 U, EVERY 10 DAYS
     Dates: start: 20101118

REACTIONS (7)
  - Renal failure [Fatal]
  - Blood urea abnormal [Fatal]
  - Blood creatinine abnormal [Fatal]
  - Pneumonia [Fatal]
  - Cardiac failure [Not Recovered/Not Resolved]
  - Myelodysplastic syndrome [Unknown]
  - Malignant neoplasm progression [Unknown]
